FAERS Safety Report 13386659 (Version 2)
Quarter: 2020Q2

REPORT INFORMATION
  Report Type: Spontaneous
  Country: US (occurrence: US)
  Receive Date: 20170330
  Receipt Date: 20200403
  Transmission Date: 20200713
  Serious: Yes (Death, Other)
  Sender: FDA-Public Use
  Company Number: US-ASTRAZENECA-2017SE31221

PATIENT
  Age: 20144 Day
  Sex: Male
  Weight: 108.9 kg

DRUGS (32)
  1. NALOXONE [Concomitant]
     Active Substance: NALOXONE
  2. METOCLOPRAMIDE. [Concomitant]
     Active Substance: METOCLOPRAMIDE
  3. TRILIPIX [Concomitant]
     Active Substance: FENOFIBRIC ACID
     Dosage: 135 MG
  4. HYDRALAZINE [Concomitant]
     Active Substance: HYDRALAZINE HYDROCHLORIDE
  5. TAMSULOSIN [Concomitant]
     Active Substance: TAMSULOSIN
  6. LABETALOL [Concomitant]
     Active Substance: LABETALOL\LABETALOL HYDROCHLORIDE
  7. CEFAZOLIN [Concomitant]
     Active Substance: CEFAZOLIN
  8. INVOKANA [Concomitant]
     Active Substance: CANAGLIFLOZIN
     Dosage: 300 MG
  9. HYDROMORPHONE [Concomitant]
     Active Substance: HYDROMORPHONE
  10. MORPHINE [Concomitant]
     Active Substance: MORPHINE
  11. MAGNESIUM SULFATE. [Concomitant]
     Active Substance: MAGNESIUM SULFATE
  12. ZOLPIDEM [Concomitant]
     Active Substance: ZOLPIDEM TARTRATE
  13. METFORM [Concomitant]
     Active Substance: METFORMIN HYDROCHLORIDE
  14. ELAVIL [Concomitant]
     Active Substance: AMITRIPTYLINE HYDROCHLORIDE
     Dosage: 50 MG
  15. PROTONIX [Concomitant]
     Active Substance: PANTOPRAZOLE SODIUM
     Dosage: 20 MG
     Route: 048
  16. METOCLOPRAMIDE. [Concomitant]
     Active Substance: METOCLOPRAMIDE
  17. SODIUM CHLORIDE. [Concomitant]
     Active Substance: SODIUM CHLORIDE
  18. POTASSIUM CHLORIDE. [Concomitant]
     Active Substance: POTASSIUM CHLORIDE
  19. KETOROLAC [Concomitant]
     Active Substance: KETOROLAC TROMETHAMINE
  20. ZOCOR [Concomitant]
     Active Substance: SIMVASTATIN
     Dosage: 40 MG
     Dates: start: 20100716
  21. LANTUS [Concomitant]
     Active Substance: INSULIN GLARGINE
  22. COQ 10 [Concomitant]
     Active Substance: UBIDECARENONE
     Dosage: 100 MG
     Dates: start: 20100716
  23. PEPCID [Concomitant]
     Active Substance: FAMOTIDINE
  24. HUMALOG [Concomitant]
     Active Substance: INSULIN LISPRO
  25. DOCUSATE [Concomitant]
     Active Substance: DOCUSATE
  26. ONDANSETRON [Concomitant]
     Active Substance: ONDANSETRON
  27. SENNA [Concomitant]
     Active Substance: SENNA LEAF\SENNOSIDES\SENNOSIDES A AND B
  28. BYETTA [Suspect]
     Active Substance: EXENATIDE
     Dosage: 250UG/ML TWO TIMES A DAY
     Route: 065
     Dates: start: 20080420, end: 20120904
  29. LISINOPRIL. [Concomitant]
     Active Substance: LISINOPRIL
     Dosage: 2.5 MG
     Dates: start: 20150518
  30. OXYCODONE [Concomitant]
     Active Substance: OXYCODONE
     Dosage: 10 MG
     Route: 048
  31. HEPARIN [Concomitant]
     Active Substance: HEPARIN SODIUM
  32. SIMETHICONE (DIMETHICONE) [Concomitant]
     Active Substance: DIMETHICONE

REACTIONS (2)
  - Pancreatic carcinoma metastatic [Fatal]
  - Adenocarcinoma pancreas [Unknown]

NARRATIVE: CASE EVENT DATE: 20150608
